FAERS Safety Report 6144507-8 (Version None)
Quarter: 2009Q2

REPORT INFORMATION
  Report Type: 
  Country: None (occurrence: None)
  Receive Date: 20090406
  Receipt Date: 20090323
  Transmission Date: 20091009
  Serious: Yes (Other)
  Sender: FDA-Public Use
  Company Number: US-ROCHE-616118

PATIENT
  Sex: Female
  Weight: 78 kg

DRUGS (5)
  1. PEG-INTERFERON A-2A (RO 25-8310) [Suspect]
     Indication: HEPATITIS C
     Route: 065
     Dates: end: 20090101
  2. RIBAVIRIN [Suspect]
     Indication: HEPATITIS C
     Route: 065
     Dates: end: 20090101
  3. ATIVAN [Concomitant]
     Indication: ANXIETY
     Dosage: FREQUENCY: Q12
     Route: 048
  4. NORCO [Concomitant]
     Indication: BACK PAIN
     Dosage: DOSAGE: 10/325; FREQUECY: Q6
     Route: 048
  5. PROMETHAZINE [Concomitant]
     Indication: NAUSEA
     Dosage: FREQUENCY: Q12
     Route: 054

REACTIONS (1)
  - VENOUS THROMBOSIS [None]
